FAERS Safety Report 9206502 (Version 1)
Quarter: 2013Q2

REPORT INFORMATION
  Report Type: Spontaneous
  Country: GB (occurrence: None)
  Receive Date: 20130401
  Receipt Date: 20130401
  Transmission Date: 20140414
  Serious: Yes (Other)
  Sender: FDA-Public Use
  Company Number: 2013-05745

PATIENT
  Age: 52 Year
  Sex: Female

DRUGS (1)
  1. CITALOPRAM HYDROBROMIDE (UNKNOWN) (CITALOPRAM HYDROBROMIDE) UNK, UNKUNK [Suspect]
     Indication: PRODUCT USED FOR UNKNOWN INDICATION

REACTIONS (3)
  - Personality change [None]
  - Feeling abnormal [None]
  - Withdrawal syndrome [None]
